FAERS Safety Report 18559322 (Version 2)
Quarter: 2021Q1

REPORT INFORMATION
  Report Type: Spontaneous
  Country: ZA (occurrence: ZA)
  Receive Date: 20201130
  Receipt Date: 20210224
  Transmission Date: 20210419
  Serious: Yes (Other)
  Sender: FDA-Public Use
  Company Number: ZA-PFIZER INC-2020469103

PATIENT
  Age: 63 Year
  Sex: Female
  Weight: 72.3 kg

DRUGS (1)
  1. METHOTREXATE SODIUM. [Suspect]
     Active Substance: METHOTREXATE SODIUM
     Dosage: UNK
     Dates: start: 1994

REACTIONS (4)
  - Drug ineffective [Unknown]
  - Drug-induced liver injury [Unknown]
  - Psoriatic arthropathy [Unknown]
  - Hepatic function abnormal [Unknown]
